FAERS Safety Report 7742309-X (Version None)
Quarter: 2011Q3

REPORT INFORMATION
  Report Type: 
  Country: None (occurrence: None)
  Receive Date: 20110907
  Receipt Date: 20110907
  Transmission Date: 20111222
  Serious: No
  Sender: FDA-Public Use
  Company Number: None

PATIENT
  Age: 66 Year
  Sex: Male

DRUGS (2)
  1. INCIVEK [Suspect]
     Indication: HEPATITIS C
     Dosage: 780MG TID ORALLY
     Route: 048
     Dates: start: 20110808, end: 20110831
  2. PEGASYS [Suspect]
     Indication: HEPATITIS C
     Dosage: 180MCG ONCE WEEKLY SUBCUTANEOUSLY
     Route: 058
     Dates: start: 20110718, end: 20110831

REACTIONS (1)
  - VISUAL IMPAIRMENT [None]
